FAERS Safety Report 5364617-2 (Version None)
Quarter: 2007Q2

REPORT INFORMATION
  Report Type: 
  Country: None (occurrence: None)
  Receive Date: 20070530
  Receipt Date: 20070119
  Transmission Date: 20071010
  Serious: No
  Sender: FDA-Public Use
  Company Number: 2007PV028765

PATIENT
  Age: 69 Year
  Sex: Male

DRUGS (3)
  1. BYETTA [Suspect]
     Indication: DIABETES MELLITUS NON-INSULIN-DEPENDENT
     Dosage: 5 MCG;BID;SC;10 MCG;BID;SC
     Route: 058
     Dates: start: 20070104, end: 20070204
  2. BYETTA [Suspect]
     Indication: DIABETES MELLITUS NON-INSULIN-DEPENDENT
     Dosage: 5 MCG;BID;SC;10 MCG;BID;SC
     Route: 058
     Dates: start: 20070205
  3. BYETTA [Suspect]

REACTIONS (7)
  - BLOOD GLUCOSE INCREASED [None]
  - DEPRESSED MOOD [None]
  - DRUG INEFFECTIVE [None]
  - NAUSEA [None]
  - PHARYNGOLARYNGEAL PAIN [None]
  - VOMITING [None]
  - WEIGHT DECREASED [None]
